FAERS Safety Report 19818289 (Version 1)
Quarter: 2021Q3

REPORT INFORMATION
  Report Type: Spontaneous
  Country: US (occurrence: US)
  Receive Date: 20210911
  Receipt Date: 20210911
  Transmission Date: 20211014
  Serious: No
  Sender: FDA-Public Use
  Company Number: US-ASTRAZENECA-2021A697753

PATIENT
  Age: 861 Month
  Sex: Female
  Weight: 47.6 kg

DRUGS (1)
  1. TAGRISSO [Suspect]
     Active Substance: OSIMERTINIB
     Indication: LUNG NEOPLASM MALIGNANT
     Route: 048
     Dates: start: 20210808, end: 20210811

REACTIONS (7)
  - Colitis [Recovering/Resolving]
  - Mucous stools [Recovering/Resolving]
  - Feeding disorder [Recovering/Resolving]
  - Central nervous system lesion [Unknown]
  - Diarrhoea [Recovering/Resolving]
  - Abdominal pain upper [Recovering/Resolving]
  - Gastritis [Recovering/Resolving]

NARRATIVE: CASE EVENT DATE: 202108
